FAERS Safety Report 6251910-4 (Version None)
Quarter: 2009Q2

REPORT INFORMATION
  Report Type: 
  Country: None (occurrence: None)
  Receive Date: 20090629
  Receipt Date: 20090626
  Transmission Date: 20091009
  Serious: Yes (Other)
  Sender: FDA-Public Use
  Company Number: 2009SP007115

PATIENT
  Age: 45 Year
  Sex: Male
  Weight: 80 kg

DRUGS (9)
  1. PEG-INTRON [Suspect]
     Indication: HEPATITIS C
     Dosage: 120 MCG;QW;SC
     Route: 058
     Dates: start: 20081202, end: 20090304
  2. REBETOL [Suspect]
     Indication: HEPATITIS C
     Dosage: 800 MG, QD, PO
     Route: 048
     Dates: start: 20081202, end: 20090311
  3. PHENYTOIN [Suspect]
     Indication: EPILEPSY
     Dosage: 300 MG, PO
     Route: 048
  4. VE-NICOTINATE (TOCOPHEROL NICOTINATE) [Concomitant]
  5. BELDERIL [Concomitant]
  6. AMARYL [Concomitant]
  7. DIOVAN [Concomitant]
  8. RIZE [Concomitant]
  9. SIMIFERON [Concomitant]

REACTIONS (6)
  - CYANOSIS [None]
  - EXTREMITY NECROSIS [None]
  - FEELING COLD [None]
  - LUPUS-LIKE SYNDROME [None]
  - PAIN [None]
  - PRURITUS [None]
